FAERS Safety Report 8533969 (Version 2)
Quarter: 2013Q3

REPORT INFORMATION
  Report Type: Spontaneous
  Country: NZ (occurrence: NZ)
  Receive Date: 20120427
  Receipt Date: 20130918
  Transmission Date: 20140515
  Serious: Yes (Other)
  Sender: FDA-Public Use
  Company Number: NZ-ROCHE-1061808

PATIENT
  Age: 19 Year
  Sex: Male

DRUGS (1)
  1. ROACCUTANE [Suspect]
     Indication: ACNE
     Route: 065

REACTIONS (8)
  - Depression [Not Recovered/Not Resolved]
  - Rectal haemorrhage [Unknown]
  - Fatigue [Unknown]
  - Back disorder [Unknown]
  - Arthropathy [Not Recovered/Not Resolved]
  - Constipation [Unknown]
  - Erectile dysfunction [Unknown]
  - Paraesthesia [Not Recovered/Not Resolved]
